FAERS Safety Report 17218423 (Version 1)
Quarter: 2020Q1

REPORT INFORMATION
  Report Type: Spontaneous
  Country: US (occurrence: US)
  Receive Date: 20191230
  Receipt Date: 20191230
  Transmission Date: 20200409
  Serious: No
  Sender: FDA-Public Use
  Company Number: None

PATIENT
  Age: 56 Year
  Sex: Male
  Weight: 79.2 kg

DRUGS (4)
  1. CAPECITABINE 150MG [Concomitant]
     Active Substance: CAPECITABINE
     Dates: start: 20191202, end: 20191219
  2. CAPECITABINE. [Suspect]
     Active Substance: CAPECITABINE
     Indication: PANCREATIC CARCINOMA
     Route: 048
  3. CAPECITABINE 500MG [Concomitant]
     Active Substance: CAPECITABINE
     Dates: start: 20191202
  4. CAPECITABINE. [Suspect]
     Active Substance: CAPECITABINE
     Route: 048

REACTIONS (3)
  - Palmar-plantar erythrodysaesthesia syndrome [None]
  - Therapy change [None]
  - Stomatitis [None]

NARRATIVE: CASE EVENT DATE: 20191219
